FAERS Safety Report 5122018-6 (Version None)
Quarter: 2006Q4

REPORT INFORMATION
  Report Type: 
  Country: None (occurrence: None)
  Receive Date: 20061006
  Receipt Date: 20061003
  Transmission Date: 20070319
  Serious: Yes (Hospitalization)
  Sender: FDA-Public Use
  Company Number: JP-SANOFI-SYNTHELABO-F01200602070

PATIENT
  Sex: Male

DRUGS (5)
  1. KYTRIL [Concomitant]
     Dosage: DOSE: 1A
     Route: 041
     Dates: start: 20060926, end: 20060926
  2. CAPECITABINE [Suspect]
     Route: 048
     Dates: start: 20060926, end: 20060927
  3. BEVACIZUMAB [Suspect]
     Route: 042
     Dates: start: 20060926, end: 20060926
  4. OXALIPLATIN [Suspect]
     Indication: LARGE INTESTINE CARCINOMA
     Route: 042
     Dates: start: 20060926, end: 20060926
  5. DECADRON [Concomitant]
     Route: 041
     Dates: start: 20060926, end: 20060926

REACTIONS (3)
  - COLITIS ISCHAEMIC [None]
  - CONSTIPATION [None]
  - WHITE BLOOD CELL COUNT INCREASED [None]
